FAERS Safety Report 24679133 (Version 2)
Quarter: 2025Q1

REPORT INFORMATION
  Report Type: Spontaneous
  Country: DK (occurrence: DK)
  Receive Date: 20241129
  Receipt Date: 20250103
  Transmission Date: 20250408
  Serious: Yes (Other)
  Sender: AMGEN
  Company Number: DK-AMGEN-DNKSP2024230456

PATIENT
  Age: 80 Year
  Sex: Female
  Weight: 42 kg

DRUGS (5)
  1. PROLIA [Suspect]
     Active Substance: DENOSUMAB
     Indication: Osteoporosis
     Route: 065
     Dates: start: 20240429
  2. PANTOPRAZOLE [Concomitant]
     Active Substance: PANTOPRAZOLE
     Indication: Abdominal pain upper
     Dosage: 40 MILLIGRAM, QD (1 TABLET ONCE DAILY)
     Dates: start: 20211006
  3. OXYCODONE [Concomitant]
     Active Substance: OXYCODONE
     Indication: Pain
     Dosage: 10 MILLIGRAM, QD (1 TABLET 2 TIMES DAILY)
     Dates: start: 20241017
  4. GABAPENTIN [Concomitant]
     Active Substance: GABAPENTIN
     Indication: Pain
     Dosage: 300 MILLIGRAM, QD (1 CAPSULE 3 TIMES DAILY)
     Dates: start: 20180911
  5. Pinex [Concomitant]
     Indication: Pain
     Dates: start: 20211006

REACTIONS (4)
  - Spinal fracture [Unknown]
  - Pain in extremity [Not Recovered/Not Resolved]
  - Spinal claudication [Unknown]
  - Restless legs syndrome [Unknown]

NARRATIVE: CASE EVENT DATE: 20240617
